FAERS Safety Report 6298023-3 (Version None)
Quarter: 2009Q3

REPORT INFORMATION
  Report Type: 
  Country: None (occurrence: None)
  Receive Date: 20090805
  Receipt Date: 20090730
  Transmission Date: 20100115
  Serious: Yes (Other)
  Sender: FDA-Public Use
  Company Number: US-AMGEN-QUU358105

PATIENT
  Sex: Female
  Weight: 99.9 kg

DRUGS (13)
  1. EPOGEN [Suspect]
     Indication: RENAL FAILURE CHRONIC
     Route: 058
  2. SENSIPAR [Concomitant]
     Indication: HYPERPARATHYROIDISM SECONDARY
  3. CRESTOR [Concomitant]
  4. GLIMEPIRIDE [Concomitant]
  5. JANUVIA [Concomitant]
  6. LABETALOL HCL [Concomitant]
  7. ALTERNAGEL [Concomitant]
  8. IRON [Concomitant]
  9. VITAMIN D [Concomitant]
  10. DULCOLAX [Concomitant]
  11. TYLENOL (CAPLET) [Concomitant]
  12. SODIUM BICARBONATE [Concomitant]
  13. SEVELAMER [Concomitant]

REACTIONS (9)
  - BALANCE DISORDER [None]
  - CONFUSIONAL STATE [None]
  - COUGH [None]
  - DYSPNOEA [None]
  - FLUID RETENTION [None]
  - HAEMOGLOBIN DECREASED [None]
  - MALAISE [None]
  - SWELLING [None]
  - THIRST [None]
